FAERS Safety Report 4344652-3 (Version None)
Quarter: 2004Q1

REPORT INFORMATION
  Report Type: 
  Country: None (occurrence: None)
  Receive Date: 20040319
  Receipt Date: 20040129
  Transmission Date: 20041129
  Serious: No
  Sender: FDA-Public Use
  Company Number: US-JNJFOC-20040200211

PATIENT
  Age: 30 Year
  Sex: Female
  Weight: 86.1834 kg

DRUGS (2)
  1. ORTHO EVRA [Suspect]
     Indication: CONTRACEPTION
     Dosage: 1 DOSES 3 IN 4 WEEKS TRANSDERMAL
     Route: 062
     Dates: start: 20040118, end: 20040128
  2. PROVENTIL [Concomitant]

REACTIONS (2)
  - ABDOMINAL PAIN [None]
  - URTICARIA [None]
